FAERS Safety Report 7041480-5 (Version None)
Quarter: 2010Q4

REPORT INFORMATION
  Report Type: 
  Country: None (occurrence: None)
  Receive Date: 20101013
  Receipt Date: 20091029
  Transmission Date: 20110411
  Serious: No
  Sender: FDA-Public Use
  Company Number: US-ASTRAZENECA-2009SE23291

PATIENT
  Age: 26 Year
  Sex: Female
  Weight: 68 kg

DRUGS (1)
  1. SYMBICORT [Suspect]
     Indication: ASTHMA
     Route: 055

REACTIONS (1)
  - DYSPHAGIA [None]
